FAERS Safety Report 7321616-9 (Version None)
Quarter: 2011Q1

REPORT INFORMATION
  Report Type: 
  Country: None (occurrence: None)
  Receive Date: 20110228
  Receipt Date: 20100811
  Transmission Date: 20110831
  Serious: No
  Sender: FDA-Public Use
  Company Number: A0877338A

PATIENT
  Age: 49 Year
  Sex: Female

DRUGS (1)
  1. VALACYCLOVIR HYDROCHLORIDE [Suspect]
     Dosage: 2G THREE TIMES PER DAY
     Route: 048

REACTIONS (1)
  - OVERDOSE [None]
